FAERS Safety Report 8481579-X (Version None)
Quarter: 2012Q3

REPORT INFORMATION
  Report Type: 
  Country: None (occurrence: None)
  Receive Date: 20120702
  Receipt Date: 20120620
  Transmission Date: 20120928
  Serious: Yes (Hospitalization, Other)
  Sender: FDA-Public Use
  Company Number: US-BAYER-2012-062553

PATIENT
  Age: 30 Year
  Sex: Female
  Weight: 63.039 kg

DRUGS (8)
  1. DROSPIRENONE AND ETHINYL ESTRADIOL [Suspect]
  2. OMEPRAZOLE [Concomitant]
     Indication: PEPTIC ULCER
  3. PROTONIX [Concomitant]
     Indication: ULCER
  4. BEYAZ [Suspect]
  5. YASMIN [Suspect]
  6. EXCEDRIN [ACETYLSALICYLIC ACID,CAFFEINE,PARACETAMOL,SALICYLAMIDE] [Concomitant]
  7. YAZ [Suspect]
  8. IBUPROFEN (ADVIL) [Concomitant]

REACTIONS (4)
  - INTRACRANIAL VENOUS SINUS THROMBOSIS [None]
  - JUGULAR VEIN THROMBOSIS [None]
  - SUBCLAVIAN VEIN THROMBOSIS [None]
  - HAEMORRHAGIC INFARCTION [None]
